FAERS Safety Report 22159645 (Version 1)
Quarter: 2023Q1

REPORT INFORMATION
  Report Type: Spontaneous
  Country: CO (occurrence: CO)
  Receive Date: 20230331
  Receipt Date: 20230331
  Transmission Date: 20230418
  Serious: Yes (Death, Other)
  Sender: FDA-Public Use
  Company Number: CO-BAXTER-2023BAX016441

PATIENT
  Age: 93 Year
  Sex: Female
  Weight: 45 kg

DRUGS (12)
  1. DIANEAL PD-2 WITH DEXTROSE [Suspect]
     Active Substance: CALCIUM CHLORIDE\DEXTROSE\MAGNESIUM CHLORIDE\SODIUM CHLORIDE\SODIUM LACTATE
     Indication: Peritoneal dialysis
     Dosage: 1 BAG OF 6L AND 1 BAG OF 2L PER DAY
     Route: 033
     Dates: start: 20230105
  2. CALCIUM CITRATE [Concomitant]
     Active Substance: CALCIUM CITRATE
     Dosage: 400 MG (SACHETS) 1 PER DAY
     Route: 065
  3. LANSOPRAZOLE [Concomitant]
     Active Substance: LANSOPRAZOLE
     Dosage: 1 TAB OF 30 MG PER DAY
     Route: 065
  4. ACETAMINOPHEN [Concomitant]
     Active Substance: ACETAMINOPHEN
     Dosage: 1 TAB OF 500 MG EVERY 8 HR
     Route: 065
  5. CETIRIZINE HYDROCHLORIDE [Concomitant]
     Active Substance: CETIRIZINE HYDROCHLORIDE
     Dosage: 1 TAB OF 10 MG PER DAY
     Route: 065
  6. BISACODYL [Concomitant]
     Active Substance: BISACODYL
     Dosage: 1 TAB OF 5 MG PER DAY
     Route: 065
  7. VITAMIN D [Concomitant]
     Active Substance: VITAMIN D NOS
     Dosage: 2000 UI TAKE 1 CAP EACH DAY
     Route: 065
  8. SULZINC [Concomitant]
     Dosage: SOLUTION 1TBSP DAILY
     Route: 065
  9. MENTHOL [Concomitant]
     Active Substance: MENTHOL
     Dosage: APPLY ACCODING TO PAIN
     Route: 065
  10. CAMPHOR [Concomitant]
     Active Substance: CAMPHOR
     Dosage: APPLY ACCORDING TO PAIN
     Route: 065
  11. GUAIACOLATE [Concomitant]
     Dosage: APPLY ACCORDING TO PAIN
     Route: 065
  12. DENOSUMAB [Concomitant]
     Active Substance: DENOSUMAB
     Dosage: EVERY 6 MONTH BY RHEUMATOLOGY
     Route: 065

REACTIONS (1)
  - Death [Fatal]

NARRATIVE: CASE EVENT DATE: 20230313
